FAERS Safety Report 9463872 (Version 2)
Quarter: 2013Q3

REPORT INFORMATION
  Report Type: Report from Study
  Country: US (occurrence: US)
  Receive Date: 20130819
  Receipt Date: 20130819
  Transmission Date: 20140515
  Serious: Yes (Other)
  Sender: FDA-Public Use
  Company Number: US-JNJFOC-20130803958

PATIENT
  Sex: Male
  Weight: 147.42 kg

DRUGS (1)
  1. REMICADE [Suspect]
     Indication: COLITIS ULCERATIVE
     Route: 042
     Dates: end: 2013

REACTIONS (2)
  - Ileostomy [Unknown]
  - Drug ineffective [Recovered/Resolved]
